FAERS Safety Report 9410840 (Version 1)
Quarter: 2013Q3

REPORT INFORMATION
  Report Type: Spontaneous
  Country: AU (occurrence: AU)
  Receive Date: 20130719
  Receipt Date: 20130719
  Transmission Date: 20140515
  Serious: Yes (Hospitalization)
  Sender: FDA-Public Use
  Company Number: AU-MERCK-1307AUS009274

PATIENT
  Age: 47 Month
  Sex: Female

DRUGS (3)
  1. CLARATYNE [Suspect]
     Dosage: UNK
     Route: 048
  2. PREDNISONE [Suspect]
     Dosage: UNK
     Route: 048
  3. PHENERGAN (PROMETHAZINE HYDROCHLORIDE) [Suspect]
     Dosage: UNK

REACTIONS (4)
  - Confusional state [Unknown]
  - Screaming [Unknown]
  - Abnormal behaviour [Unknown]
  - Rash [Unknown]
